FAERS Safety Report 6096746-2 (Version None)
Quarter: 2009Q1

REPORT INFORMATION
  Report Type: 
  Country: None (occurrence: None)
  Receive Date: 20090227
  Receipt Date: 20090218
  Transmission Date: 20090719
  Serious: Yes (Hospitalization)
  Sender: FDA-Public Use
  Company Number: US-BIOGENIDEC-2007BI013181

PATIENT
  Age: 60 Year
  Sex: Female
  Weight: 70 kg

DRUGS (5)
  1. AVONEX [Suspect]
     Indication: MULTIPLE SCLEROSIS
     Route: 030
     Dates: start: 19991101, end: 20050101
  2. AVONEX [Suspect]
     Route: 030
     Dates: start: 20050101, end: 20050101
  3. AVONEX [Suspect]
     Route: 030
     Dates: start: 20060228, end: 20070401
  4. AVONEX [Suspect]
     Route: 030
     Dates: start: 20070501
  5. AVONEX [Suspect]
     Route: 030
     Dates: start: 20070702

REACTIONS (3)
  - DECREASED IMMUNE RESPONSIVENESS [None]
  - PEMPHIGOID [None]
  - STREPTOCOCCAL INFECTION [None]
